FAERS Safety Report 7148953-5 (Version None)
Quarter: 2010Q4

REPORT INFORMATION
  Report Type: 
  Country: None (occurrence: None)
  Receive Date: 20101209
  Receipt Date: 20101202
  Transmission Date: 20110411
  Serious: Yes (Other)
  Sender: FDA-Public Use
  Company Number: B0687978A

PATIENT
  Age: 68 Year
  Sex: Male

DRUGS (6)
  1. CLENIL MODULITE [Suspect]
     Indication: ASTHMA
     Dosage: 100MCG TWICE PER DAY
     Route: 055
     Dates: start: 20101005, end: 20101005
  2. ASPIRIN [Concomitant]
     Dosage: 75MG PER DAY
     Route: 065
  3. BECLOMETHASONE DIPROPIONATE [Concomitant]
     Indication: ASTHMA
     Dosage: 1U TWICE PER DAY
     Route: 065
  4. LEVOTHYROXINE SODIUM [Concomitant]
     Indication: HYPOTHYROIDISM
     Dosage: 100MCG PER DAY
     Route: 048
  5. OMEPRAZOLE [Concomitant]
     Dosage: 20MG PER DAY
     Route: 048
  6. SALBUTAMOL [Concomitant]
     Indication: ASTHMA
     Route: 065

REACTIONS (1)
  - CHEST DISCOMFORT [None]
